FAERS Safety Report 25901601 (Version 2)
Quarter: 2025Q4

REPORT INFORMATION
  Report Type: Spontaneous
  Country: US (occurrence: US)
  Receive Date: 20251009
  Receipt Date: 20251016
  Transmission Date: 20260118
  Serious: No
  Sender: SANOFI AVENTIS
  Company Number: US-SA-2025SA295485

PATIENT
  Age: 84 Year
  Sex: Female

DRUGS (2)
  1. DUPIXENT [Suspect]
     Active Substance: DUPILUMAB
     Indication: Dermatitis atopic
     Dosage: 600 MG, 1X
     Dates: start: 202505, end: 202505
  2. DUPIXENT [Suspect]
     Active Substance: DUPILUMAB
     Dosage: 300 MG, QOW
     Dates: start: 2025, end: 2025

REACTIONS (8)
  - Dysphonia [Unknown]
  - Visual impairment [Unknown]
  - Dysuria [Unknown]
  - Paraesthesia [Unknown]
  - Condition aggravated [Unknown]
  - Asthenia [Unknown]
  - Back pain [Unknown]
  - Oral herpes [Unknown]

NARRATIVE: CASE EVENT DATE: 20250101
